FAERS Safety Report 8399404-4 (Version None)
Quarter: 2012Q2

REPORT INFORMATION
  Report Type: 
  Country: None (occurrence: None)
  Receive Date: 20120323
  Receipt Date: 20110127
  Transmission Date: 20120825
  Serious: Yes (Other)
  Sender: FDA-Public Use
  Company Number: 163-21880-11010767

PATIENT
  Age: 77 Year
  Sex: Female
  Weight: 65.7716 kg

DRUGS (6)
  1. CENTRUM SILVER (CENTRUM SILVER) [Concomitant]
  2. REVLIMID [Suspect]
     Dosage: 25 MG, QD X 21 DAYS, PO
     Route: 048
     Dates: start: 20101222
  3. CALCIUM WITH VITAMIN D(CALCIUM WITH VITAMIN D) [Concomitant]
  4. ZOCOR [Concomitant]
  5. LYRICA [Concomitant]
  6. FOLIC ACID [Concomitant]

REACTIONS (1)
  - PLATELET COUNT DECREASED [None]
